FAERS Safety Report 4439104-6 (Version None)
Quarter: 2004Q3

REPORT INFORMATION
  Report Type: 
  Country: None (occurrence: None)
  Receive Date: 20040831
  Receipt Date: 20040818
  Transmission Date: 20050211
  Serious: Yes (Hospitalization)
  Sender: FDA-Public Use
  Company Number: 2004UW17570

PATIENT
  Sex: Female

DRUGS (3)
  1. CRESTOR [Suspect]
     Dosage: 20 MG PO
     Route: 048
     Dates: start: 20040101
  2. LIPITOR [Concomitant]
  3. FUROSEMIDE [Concomitant]

REACTIONS (3)
  - MEDICATION ERROR [None]
  - RENAL FAILURE [None]
  - RHABDOMYOLYSIS [None]
